FAERS Safety Report 6170729-6 (Version None)
Quarter: 2009Q2

REPORT INFORMATION
  Report Type: 
  Country: None (occurrence: None)
  Receive Date: 20090428
  Receipt Date: 20090420
  Transmission Date: 20091009
  Serious: Yes (Hospitalization)
  Sender: FDA-Public Use
  Company Number: US-GENENTECH-281275

PATIENT
  Sex: Male
  Weight: 82.54 kg

DRUGS (13)
  1. BEVACIZUMAB [Suspect]
     Indication: HEAD AND NECK CANCER
     Dosage: 15 MG/KG, Q3W
     Route: 042
     Dates: start: 20090311
  2. PEMETREXED [Suspect]
     Indication: HEAD AND NECK CANCER
     Dosage: 500 MG/M2, Q3W
     Route: 042
     Dates: start: 20090318
  3. CETUXIMAB [Suspect]
     Indication: HEAD AND NECK CANCER
     Dosage: 250 MG/M2, 1/WEEK
     Route: 042
     Dates: start: 20090311
  4. VITAMIN B-12 [Concomitant]
     Indication: DRUG USE FOR UNKNOWN INDICATION
  5. FOLIC ACID [Concomitant]
     Indication: DRUG USE FOR UNKNOWN INDICATION
  6. CIPROFLOXACIN HCL [Concomitant]
     Indication: DRUG USE FOR UNKNOWN INDICATION
  7. NEXIUM [Concomitant]
     Indication: DRUG USE FOR UNKNOWN INDICATION
  8. FENTANYL [Concomitant]
     Indication: DRUG USE FOR UNKNOWN INDICATION
  9. VICODIN [Concomitant]
     Indication: DRUG USE FOR UNKNOWN INDICATION
  10. ROXICET [Concomitant]
     Indication: DRUG USE FOR UNKNOWN INDICATION
  11. ALLEGRA [Concomitant]
     Indication: DRUG USE FOR UNKNOWN INDICATION
  12. SYNTHROID [Concomitant]
     Indication: DRUG USE FOR UNKNOWN INDICATION
  13. MINOCYCLINE HCL [Concomitant]
     Indication: DRUG USE FOR UNKNOWN INDICATION

REACTIONS (2)
  - DYSPHAGIA [None]
  - NAUSEA [None]
